FAERS Safety Report 23162055 (Version 2)
Quarter: 2023Q4

REPORT INFORMATION
  Report Type: Spontaneous
  Country: ES (occurrence: ES)
  Receive Date: 20231109
  Receipt Date: 20231122
  Transmission Date: 20240110
  Serious: Yes (Hospitalization)
  Sender: FDA-Public Use
  Company Number: ES-TEVA-2023-ES-2942720

PATIENT
  Age: 46 Year
  Sex: Male

DRUGS (16)
  1. AZITHROMYCIN [Suspect]
     Active Substance: AZITHROMYCIN
     Indication: Mycobacterium avium complex infection
     Route: 065
     Dates: start: 202012
  2. LEVOFLOXACIN [Suspect]
     Active Substance: LEVOFLOXACIN
     Indication: Mycobacterium avium complex infection
     Route: 065
     Dates: start: 2021
  3. RIFAMPIN [Interacting]
     Active Substance: RIFAMPIN
     Indication: Mycobacterium avium complex infection
     Route: 065
     Dates: start: 202012, end: 2021
  4. ETHAMBUTOL [Suspect]
     Active Substance: ETHAMBUTOL HYDROCHLORIDE
     Indication: Mycobacterium avium complex infection
     Route: 065
     Dates: start: 202012, end: 2021
  5. EFAVIRENZ\EMTRICITABINE\TENOFOVIR DISOPROXIL FUMARATE [Interacting]
     Active Substance: EFAVIRENZ\EMTRICITABINE\TENOFOVIR DISOPROXIL FUMARATE
     Indication: HIV infection CDC category C
     Route: 065
     Dates: start: 202012, end: 2021
  6. EMTRICITABINE\TENOFOVIR DISOPROXIL FUMARATE [Concomitant]
     Active Substance: EMTRICITABINE\TENOFOVIR DISOPROXIL FUMARATE
     Indication: HIV infection CDC category C
     Route: 065
     Dates: start: 202111, end: 2022
  7. DOLUTEGRAVIR [Concomitant]
     Active Substance: DOLUTEGRAVIR
     Indication: HIV infection CDC category C
     Route: 065
     Dates: start: 202111, end: 2022
  8. CYCLOSERINE [Concomitant]
     Active Substance: CYCLOSERINE
     Indication: Mycobacterium avium complex infection
     Route: 065
     Dates: start: 2021
  9. AMIKACIN [Concomitant]
     Active Substance: AMIKACIN
     Indication: Mycobacterium avium complex infection
     Route: 065
     Dates: start: 2021
  10. AMIKACIN [Concomitant]
     Active Substance: AMIKACIN
     Route: 065
     Dates: end: 2022
  11. MEROPENEM [Concomitant]
     Active Substance: MEROPENEM
     Indication: Mycobacterium avium complex infection
     Route: 065
     Dates: start: 2021, end: 2022
  12. LINEZOLID [Concomitant]
     Active Substance: LINEZOLID
     Indication: Mycobacterium avium complex infection
     Route: 065
     Dates: start: 2021, end: 2022
  13. MOXIFLOXACIN [Concomitant]
     Active Substance: MOXIFLOXACIN
     Indication: Mycobacterium avium complex infection
     Route: 065
     Dates: start: 2021, end: 2022
  14. MORPHINE [Concomitant]
     Active Substance: MORPHINE
     Indication: Pain
     Route: 065
     Dates: start: 202110
  15. BICTEGRAVIR\EMTRICITABINE\TENOFOVIR ALAFENAMIDE [Concomitant]
     Active Substance: BICTEGRAVIR\EMTRICITABINE\TENOFOVIR ALAFENAMIDE
     Indication: HIV infection CDC category C
     Route: 065
     Dates: start: 202006, end: 202012
  16. BICTEGRAVIR\EMTRICITABINE\TENOFOVIR ALAFENAMIDE [Concomitant]
     Active Substance: BICTEGRAVIR\EMTRICITABINE\TENOFOVIR ALAFENAMIDE
     Route: 065
     Dates: start: 202201

REACTIONS (2)
  - Treatment failure [Unknown]
  - Drug interaction [Unknown]
